FAERS Safety Report 8481042 (Version 5)
Quarter: 2012Q4

REPORT INFORMATION
  Report Type: 
  Country: JP (occurrence: JP)
  Receive Date: 20120328
  Receipt Date: 20121026
  Transmission Date: 20130627
  Serious: Yes (Hospitalization, Other)
  Sender: FDA-Public Use
  Company Number: JP-AMGEN-JPNCT2012019623

PATIENT
  Age: 63 Year
  Sex: Male
  Weight: 66 kg

DRUGS (8)
  1. DENOSUMAB [Suspect]
     Indication: RHEUMATOID ARTHRITIS
     Dosage: 60 mg, q3mo
     Route: 058
     Dates: start: 20110704, end: 20120305
  2. METOTREXATE [Concomitant]
     Indication: RHEUMATOID ARTHRITIS
     Dosage: 8 mg, qwk
     Route: 048
     Dates: end: 20120317
  3. FOLIAMIN [Concomitant]
     Indication: PROPHYLAXIS
     Dosage: 5 mg, qwk
     Route: 048
     Dates: end: 20120317
  4. URALYT [Concomitant]
     Indication: GOUT
     Dosage: Unknown
     Route: 048
  5. POTASSIUM CITRATE W/SODIUM CITRATE [Concomitant]
     Indication: GOUT
     Route: 048
  6. MOHRUS [Concomitant]
     Indication: RHEUMATOID ARTHRITIS
     Dosage: 1 DF, prn
     Route: 062
     Dates: end: 20120317
  7. PROTECADIN [Concomitant]
     Indication: DUODENAL ULCER
     Route: 048
     Dates: start: 20110130, end: 20120319
  8. CALCICHEW D3 [Concomitant]
     Indication: PRODUCT USED FOR UNKNOWN INDICATION
     Route: 048
     Dates: start: 20110613, end: 20120317

REACTIONS (1)
  - Cerebral haemorrhage [Recovering/Resolving]
